FAERS Safety Report 23239379 (Version 1)
Quarter: 2023Q4

REPORT INFORMATION
  Report Type: Report from Study
  Country: CA (occurrence: None)
  Receive Date: 20231129
  Receipt Date: 20231129
  Transmission Date: 20240110
  Serious: Yes (Other)
  Sender: FDA-Public Use
  Company Number: CA-PFIZER INC-202300401349

PATIENT
  Age: 51 Year
  Sex: Male

DRUGS (9)
  1. METHOTREXATE [Suspect]
     Active Substance: METHOTREXATE
     Indication: Product used for unknown indication
  2. COSENTYX [Suspect]
     Active Substance: SECUKINUMAB
     Indication: Psoriatic arthropathy
  3. COSENTYX [Suspect]
     Active Substance: SECUKINUMAB
     Indication: Ankylosing spondylitis
  4. COSENTYX [Suspect]
     Active Substance: SECUKINUMAB
  5. COSENTYX [Suspect]
     Active Substance: SECUKINUMAB
  6. CODEINE [Concomitant]
     Active Substance: CODEINE
  7. FOLIC ACID [Concomitant]
     Active Substance: FOLIC ACID
  8. LORATADINE [Concomitant]
     Active Substance: LORATADINE
  9. PANTOPRAZOLE [Concomitant]
     Active Substance: PANTOPRAZOLE

REACTIONS (7)
  - Drug ineffective [Recovering/Resolving]
  - Enthesopathy [Recovering/Resolving]
  - Inflammation [Recovering/Resolving]
  - Nausea [Recovering/Resolving]
  - Oral herpes [Recovering/Resolving]
  - Psoriatic arthropathy [Recovering/Resolving]
  - Upper respiratory tract infection [Recovering/Resolving]
